FAERS Safety Report 6326107-X (Version None)
Quarter: 2009Q3

REPORT INFORMATION
  Report Type: 
  Country: None (occurrence: None)
  Receive Date: 20090824
  Receipt Date: 20090812
  Transmission Date: 20100115
  Serious: Yes (Other)
  Sender: FDA-Public Use
  Company Number: PHHY2009IE25970

PATIENT
  Sex: Female

DRUGS (4)
  1. CLOZARIL [Suspect]
     Indication: SCHIZOPHRENIA
     Dosage: 100 MG AM AND 175 MG PM
     Route: 048
     Dates: start: 20090519
  2. METHADONE [Interacting]
     Indication: DRUG DEPENDENCE
     Dosage: 90 ML DAILY
     Route: 048
  3. MIRTAZAPINE [Concomitant]
     Indication: DEPRESSION
     Dosage: 30 MG DAILY
     Route: 048
  4. KEMADRIN [Concomitant]
     Dosage: 15 MG DAILY
     Route: 048

REACTIONS (5)
  - AFFECTIVE DISORDER [None]
  - DRUG INTERACTION [None]
  - DRUG WITHDRAWAL SYNDROME [None]
  - LACRIMATION INCREASED [None]
  - NAUSEA [None]
